FAERS Safety Report 20654794 (Version 2)
Quarter: 2022Q2

REPORT INFORMATION
  Report Type: Spontaneous
  Country: US (occurrence: US)
  Receive Date: 20220330
  Receipt Date: 20220519
  Transmission Date: 20220721
  Serious: No
  Sender: FDA-Public Use
  Company Number: US-PFIZER INC-202200349416

PATIENT
  Sex: Male

DRUGS (1)
  1. SOMAVERT [Suspect]
     Active Substance: PEGVISOMANT
     Dosage: UNK

REACTIONS (5)
  - Arthritis [Unknown]
  - Poor quality product administered [Unknown]
  - Product preparation issue [Unknown]
  - Product physical issue [Unknown]
  - Product solubility abnormal [Unknown]
